FAERS Safety Report 4771986-0 (Version None)
Quarter: 2005Q3

REPORT INFORMATION
  Report Type: 
  Country: None (occurrence: None)
  Receive Date: 20050916
  Receipt Date: 20050908
  Transmission Date: 20060218
  Serious: Yes (Hospitalization)
  Sender: FDA-Public Use
  Company Number: NL-MERCK-0509NLD00010

PATIENT
  Age: 34 Year
  Sex: Male

DRUGS (1)
  1. ZOCOR [Suspect]
     Indication: HYPERCHOLESTEROLAEMIA
     Route: 065

REACTIONS (4)
  - ABDOMINAL PAIN UPPER [None]
  - GLYCOGEN STORAGE DISEASE TYPE II [None]
  - MUSCLE SPASMS [None]
  - MYOPATHY [None]
